FAERS Safety Report 16860243 (Version 1)
Quarter: 2019Q4

REPORT INFORMATION
  Report Type: Spontaneous
  Country: US (occurrence: US)
  Receive Date: 20190926
  Receipt Date: 20190926
  Transmission Date: 20200122
  Serious: Yes (Life-Threatening, Hospitalization, Other)
  Sender: FDA-Public Use
  Company Number: None

PATIENT
  Age: 69 Year
  Sex: Male
  Weight: 81.65 kg

DRUGS (11)
  1. IIDOCAINE [Concomitant]
  2. REVATIO [Suspect]
     Active Substance: SILDENAFIL CITRATE
  3. HYDROCODONE/APAP TAB 5/300 [Concomitant]
  4. TRULICITY [Suspect]
     Active Substance: DULAGLUTIDE
     Indication: DIABETES MELLITUS
     Route: 058
     Dates: start: 20190912, end: 20190912
  5. PRAVASTATIN. [Suspect]
     Active Substance: PRAVASTATIN
  6. ELIQUIS [Suspect]
     Active Substance: APIXABAN
  7. BACTRIM DS TAB 800-160 [Concomitant]
  8. ELIQUIS [Suspect]
     Active Substance: APIXABAN
  9. LANTUS VIAL U-100 [Concomitant]
  10. CIPROFLOXACIN TAB 500MG [Concomitant]
     Active Substance: CIPROFLOXACIN
  11. LISINOPRIL-HCTZ TAB 20-25MG [Concomitant]

REACTIONS (1)
  - Swollen tongue [None]

NARRATIVE: CASE EVENT DATE: 20190913
